FAERS Safety Report 9423566 (Version 2)
Quarter: 2013Q3

REPORT INFORMATION
  Report Type: Spontaneous
  Country: ZA (occurrence: ZA)
  Receive Date: 20130726
  Receipt Date: 20130806
  Transmission Date: 20140515
  Serious: Yes (Other)
  Sender: FDA-Public Use
  Company Number: ZA-PFIZER INC-2013215073

PATIENT
  Age: 71 Year
  Sex: Female
  Weight: 59 kg

DRUGS (3)
  1. SALAZOPYRIN [Suspect]
     Indication: RHEUMATOID ARTHRITIS
     Dosage: 2 DF (TABLETS), 2X/DAY
     Route: 048
  2. ZOCOR [Concomitant]
     Indication: HYPERTENSION
     Dosage: UNK
     Route: 048
  3. MOBIC [Concomitant]
     Indication: HYPERTENSION
     Dosage: UNK
     Route: 048

REACTIONS (3)
  - Palpitations [Recovered/Resolved]
  - Hypopnoea [Not Recovered/Not Resolved]
  - Fatigue [Recovered/Resolved]
